FAERS Safety Report 6371494-X (Version None)
Quarter: 2009Q3

REPORT INFORMATION
  Report Type: 
  Country: None (occurrence: None)
  Receive Date: 20090923
  Receipt Date: 20070910
  Transmission Date: 20100115
  Serious: Yes (Hospitalization, Other)
  Sender: FDA-Public Use
  Company Number: US-ASTRAZENECA-2007UW08952

PATIENT
  Age: 51 Year
  Sex: Male
  Weight: 122.5 kg

DRUGS (24)
  1. SEROQUEL [Suspect]
     Indication: TACHYPHRENIA
     Dosage: 25 - 600 MG
     Route: 048
     Dates: start: 19990101
  2. SEROQUEL [Suspect]
     Indication: PSYCHOTIC DISORDER
     Dosage: 25 - 600 MG
     Route: 048
     Dates: start: 19990101
  3. SEROQUEL [Suspect]
     Indication: AFFECTIVE DISORDER
     Dosage: 25 - 600 MG
     Route: 048
     Dates: start: 19990101
  4. SEROQUEL [Suspect]
     Indication: INSOMNIA
     Dosage: 25 - 600 MG
     Route: 048
     Dates: start: 19990101
  5. SEROQUEL [Suspect]
     Dosage: 25-1800 MG
     Route: 048
     Dates: start: 20001227
  6. SEROQUEL [Suspect]
     Dosage: 25-1800 MG
     Route: 048
     Dates: start: 20001227
  7. SEROQUEL [Suspect]
     Dosage: 25-1800 MG
     Route: 048
     Dates: start: 20001227
  8. SEROQUEL [Suspect]
     Dosage: 25-1800 MG
     Route: 048
     Dates: start: 20001227
  9. SEROQUEL [Suspect]
     Dosage: 300 MG, 7-8 TABLETS, ONLY ONCE
     Route: 048
     Dates: start: 20060703, end: 20060703
  10. SEROQUEL [Suspect]
     Dosage: 300 MG, 7-8 TABLETS, ONLY ONCE
     Route: 048
     Dates: start: 20060703, end: 20060703
  11. SEROQUEL [Suspect]
     Dosage: 300 MG, 7-8 TABLETS, ONLY ONCE
     Route: 048
     Dates: start: 20060703, end: 20060703
  12. SEROQUEL [Suspect]
     Dosage: 300 MG, 7-8 TABLETS, ONLY ONCE
     Route: 048
     Dates: start: 20060703, end: 20060703
  13. DEPAKOTE ER [Concomitant]
     Route: 048
     Dates: start: 20050518
  14. PROZAC [Concomitant]
     Route: 048
  15. BUSPAR [Concomitant]
     Route: 048
  16. ATIVAN [Concomitant]
     Indication: ANXIETY
     Dosage: 1 MG, EVERY 6 HRS AS NEEDED
     Route: 048
  17. THORAZINE [Concomitant]
     Indication: AGITATION
     Route: 048
  18. HYDROCHLOROTHIAZIDE [Concomitant]
     Indication: HYPERTENSION
     Route: 048
  19. ZYPREXA [Concomitant]
     Route: 048
  20. SYNTHROID [Concomitant]
     Route: 048
     Dates: start: 19940311
  21. VISTARIL [Concomitant]
     Indication: ANXIETY
     Route: 048
     Dates: start: 20050518
  22. METFORMIN HCL [Concomitant]
     Route: 048
     Dates: start: 20031201
  23. GLIPIZIDE [Concomitant]
     Route: 048
     Dates: start: 20050725
  24. LANTUS [Concomitant]
     Dosage: 20 UNITS, AT NIGHT
     Route: 058
     Dates: start: 20060704

REACTIONS (6)
  - DIABETES MELLITUS [None]
  - DIABETIC COMA [None]
  - HYPOGLYCAEMIA [None]
  - HYPOGLYCAEMIC COMA [None]
  - TYPE 1 DIABETES MELLITUS [None]
  - TYPE 2 DIABETES MELLITUS [None]
